FAERS Safety Report 15889372 (Version 1)
Quarter: 2019Q1

REPORT INFORMATION
  Report Type: Spontaneous
  Country: RO (occurrence: RO)
  Receive Date: 20190130
  Receipt Date: 20190130
  Transmission Date: 20190417
  Serious: Yes (Other)
  Sender: FDA-Public Use
  Company Number: RO-PFIZER INC-2019038096

PATIENT
  Age: 40 Year
  Sex: Male
  Weight: 72 kg

DRUGS (6)
  1. VITAMIN D1 [Concomitant]
     Dosage: UNK UNK, 1X/DAY, MORNING
  2. AXITINIB [Suspect]
     Active Substance: AXITINIB
     Indication: RENAL CANCER METASTATIC
     Dosage: 5 MG, 2X/DAY
     Dates: start: 20180420, end: 20190108
  3. CALCIUM LACTATE [Concomitant]
     Active Substance: CALCIUM LACTATE
     Dosage: UNK UNK, 1X/DAY, MORNING
  4. GRANISETRON [Concomitant]
     Active Substance: GRANISETRON
     Dosage: UNK UNK, 1X/DAY, MORNING
  5. OMEGA 3 COMPLEX [FISH OIL;VITAMIN E NOS] [Concomitant]
     Dosage: UNK UNK, 1X/DAY, NOON
  6. NEBILET [Concomitant]
     Active Substance: NEBIVOLOL
     Dosage: 5 MG, 1X/DAY, MORNING

REACTIONS (1)
  - Seizure [Recovered/Resolved]

NARRATIVE: CASE EVENT DATE: 20190108
